FAERS Safety Report 6348200-8 (Version None)
Quarter: 2009Q3

REPORT INFORMATION
  Report Type: 
  Country: None (occurrence: None)
  Receive Date: 20090908
  Receipt Date: 20090826
  Transmission Date: 20100115
  Serious: Yes (Other)
  Sender: FDA-Public Use
  Company Number: 2009010080

PATIENT
  Sex: Female

DRUGS (2)
  1. TREANDA [Suspect]
     Indication: B-CELL LYMPHOMA
     Dosage: INTRAVENOUS PRE-SET CYCLES (IN THE 5TH CYCLE FOR THIS REPORT)
     Route: 042
  2. RITUXAN [Suspect]
     Indication: B-CELL LYMPHOMA
     Dosage: INTRAVENOUS
     Route: 042

REACTIONS (4)
  - C-REACTIVE PROTEIN INCREASED [None]
  - HAEMOGLOBIN DECREASED [None]
  - LOWER RESPIRATORY TRACT INFECTION FUNGAL [None]
  - RED BLOOD CELL COUNT DECREASED [None]
